FAERS Safety Report 24783318 (Version 2)
Quarter: 2025Q1

REPORT INFORMATION
  Report Type: Spontaneous
  Country: US (occurrence: US)
  Receive Date: 20241227
  Receipt Date: 20250129
  Transmission Date: 20250408
  Serious: No
  Sender: PFIZER
  Company Number: US-PFIZER INC-202400254656

PATIENT
  Age: 69 Year
  Sex: Female
  Weight: 67.3 kg

DRUGS (3)
  1. MYLOTARG [Suspect]
     Active Substance: GEMTUZUMAB OZOGAMICIN
     Indication: Acute myeloid leukaemia
     Route: 042
     Dates: start: 20240909
  2. DAUNORUBICIN [Concomitant]
     Active Substance: DAUNORUBICIN
     Indication: Acute myeloid leukaemia
     Route: 042
     Dates: start: 20240904, end: 20240906
  3. CYTARABINE [Concomitant]
     Active Substance: CYTARABINE
     Indication: Acute myeloid leukaemia
     Dates: start: 20240904

REACTIONS (5)
  - Tachycardia [Unknown]
  - Chills [Recovering/Resolving]
  - Confusional state [Recovering/Resolving]
  - Incorrect product administration duration [Unknown]
  - Device programming error [Unknown]

NARRATIVE: CASE EVENT DATE: 20240909
